FAERS Safety Report 16198652 (Version 2)
Quarter: 2019Q3

REPORT INFORMATION
  Report Type: Report from Study
  Country: US (occurrence: US)
  Receive Date: 20190415
  Receipt Date: 20190708
  Transmission Date: 20191004
  Serious: Yes (Other)
  Sender: FDA-Public Use
  Company Number: US-009507513-1904USA004063

PATIENT
  Age: 68 Year
  Sex: Female

DRUGS (9)
  1. SERTRALINE HYDROCHLORIDE. [Concomitant]
     Active Substance: SERTRALINE HYDROCHLORIDE
  2. PNEUMOCOCCAL VACCINE (UNSPECIFIED) [Concomitant]
  3. BENTYL [Concomitant]
     Active Substance: DICYCLOMINE HYDROCHLORIDE
  4. MECLIZINE [Concomitant]
     Active Substance: MECLIZINE HYDROCHLORIDE
  5. DULERA [Suspect]
     Active Substance: FORMOTEROL FUMARATE DIHYDRATE\MOMETASONE FUROATE
     Indication: ASTHMA
     Dosage: TWO 200MCG PUFFS/ DAILY
     Route: 055
     Dates: start: 2015
  6. FLUTICASONE. [Concomitant]
     Active Substance: FLUTICASONE
  7. ALBUTEROL. [Concomitant]
     Active Substance: ALBUTEROL
  8. POTASSIUM CHLORIDE. [Concomitant]
     Active Substance: POTASSIUM CHLORIDE
  9. CLONAZEPAM. [Concomitant]
     Active Substance: CLONAZEPAM

REACTIONS (12)
  - Amnesia [Not Recovered/Not Resolved]
  - Fatigue [Not Recovered/Not Resolved]
  - Vomiting [Not Recovered/Not Resolved]
  - Platelet count increased [Not Recovered/Not Resolved]
  - Back pain [Not Recovered/Not Resolved]
  - Neoplasm malignant [Not Recovered/Not Resolved]
  - White blood cell count increased [Not Recovered/Not Resolved]
  - Throat lesion [Not Recovered/Not Resolved]
  - White blood cell morphology abnormal [Not Recovered/Not Resolved]
  - Pulmonary oedema [Not Recovered/Not Resolved]
  - White blood cell disorder [Not Recovered/Not Resolved]
  - Iron overload [Not Recovered/Not Resolved]

NARRATIVE: CASE EVENT DATE: 201903
